FAERS Safety Report 9908041 (Version 1)
Quarter: 2014Q1

REPORT INFORMATION
  Report Type: Spontaneous
  Country: US (occurrence: None)
  Receive Date: 20140212
  Receipt Date: 20140212
  Transmission Date: 20141002
  Serious: Yes (Other)
  Sender: FDA-Public Use
  Company Number: None

PATIENT
  Age: 21 Year
  Sex: Male
  Weight: 74.84 kg

DRUGS (1)
  1. MEFLOQUINE [Suspect]
     Dates: start: 20130604, end: 20130802

REACTIONS (11)
  - Hypoaesthesia [None]
  - Ear pain [None]
  - Vertigo [None]
  - Nausea [None]
  - Chest pain [None]
  - Insomnia [None]
  - Anxiety [None]
  - Nightmare [None]
  - Depression [None]
  - Palpitations [None]
  - Medication error [None]
